FAERS Safety Report 6692310-2 (Version None)
Quarter: 2010Q2

REPORT INFORMATION
  Report Type: 
  Country: None (occurrence: None)
  Receive Date: 20100419
  Receipt Date: 20100413
  Transmission Date: 20101027
  Serious: Yes (Hospitalization, Other)
  Sender: FDA-Public Use
  Company Number: 2010US000114

PATIENT
  Age: 38 Year
  Sex: Male

DRUGS (6)
  1. LEXISCAN [Suspect]
     Indication: SCAN MYOCARDIAL PERFUSION
     Dosage: IV NOS
     Route: 042
     Dates: start: 20100112, end: 20100112
  2. NSAID'S [Concomitant]
  3. LISINOPRIL [Concomitant]
  4. AMLODIPINE [Concomitant]
  5. HYDROCHLOROTHIAZIDE [Concomitant]
  6. CLONIDINE [Concomitant]

REACTIONS (5)
  - GASTRITIS [None]
  - MALLORY-WEISS SYNDROME [None]
  - NAUSEA [None]
  - NON-CARDIAC CHEST PAIN [None]
  - VOMITING [None]
